FAERS Safety Report 21460545 (Version 2)
Quarter: 2022Q4

REPORT INFORMATION
  Report Type: Spontaneous
  Country: US (occurrence: US)
  Receive Date: 20221015
  Receipt Date: 20221117
  Transmission Date: 20230113
  Serious: Yes (Other)
  Sender: FDA-Public Use
  Company Number: US-AUROBINDO-AUR-APL-2022-038960

PATIENT

DRUGS (1)
  1. LAMOTRIGINE [Suspect]
     Active Substance: LAMOTRIGINE
     Indication: Product used for unknown indication
     Dosage: UNK
     Route: 065

REACTIONS (10)
  - Mental impairment [Unknown]
  - Confusional state [Unknown]
  - Dysarthria [Unknown]
  - Tremor [Unknown]
  - Impaired driving ability [Unknown]
  - Mania [Unknown]
  - Aphasia [Unknown]
  - Cognitive disorder [Unknown]
  - Product substitution issue [Unknown]
  - Joint dislocation [Unknown]
